FAERS Safety Report 7920382-3 (Version None)
Quarter: 2011Q4

REPORT INFORMATION
  Report Type: 
  Country: None (occurrence: None)
  Receive Date: 20111117
  Receipt Date: 20111110
  Transmission Date: 20120403
  Serious: Yes (Death, Other)
  Sender: FDA-Public Use
  Company Number: PT-CELGENEUS-130-50794-11111583

PATIENT

DRUGS (2)
  1. VIDAZA [Suspect]
     Route: 065
     Dates: start: 20070101, end: 20101201
  2. VIDAZA [Suspect]

REACTIONS (7)
  - ACUTE MYELOID LEUKAEMIA [None]
  - SKIN DISORDER [None]
  - GASTROINTESTINAL TOXICITY [None]
  - HAEMATOTOXICITY [None]
  - TOXICITY TO VARIOUS AGENTS [None]
  - DEATH [None]
  - MYELODYSPLASTIC SYNDROME TRANSFORMATION [None]
